FAERS Safety Report 24894829 (Version 1)
Quarter: 2025Q1

REPORT INFORMATION
  Report Type: Spontaneous
  Country: BR (occurrence: BR)
  Receive Date: 20250128
  Receipt Date: 20250128
  Transmission Date: 20250408
  Serious: Yes (Hospitalization)
  Sender: AMGEN
  Company Number: BR-AMGEN-BRASP2025013575

PATIENT

DRUGS (1)
  1. RITUXIMAB [Suspect]
     Active Substance: RITUXIMAB
     Indication: Non-Hodgkin^s lymphoma
     Route: 065

REACTIONS (8)
  - Dry mouth [Unknown]
  - Cheilitis [Unknown]
  - Petechiae [Unknown]
  - Gingivitis ulcerative [Unknown]
  - Candida infection [Unknown]
  - Stomatitis [Unknown]
  - Fungal infection [Unknown]
  - Herpes virus infection [Unknown]
